FAERS Safety Report 9369808 (Version 2)
Quarter: 2013Q2

REPORT INFORMATION
  Report Type: Spontaneous
  Country: DE (occurrence: DE)
  Receive Date: 20130626
  Receipt Date: 20130626
  Transmission Date: 20140414
  Serious: Yes (Other)
  Sender: FDA-Public Use
  Company Number: DE-JNJFOC-20130608843

PATIENT
  Age: 38 Year
  Sex: Male

DRUGS (2)
  1. DOXORUBICIN HYDROCHLORIDE [Suspect]
     Indication: METASTASES TO PERITONEUM
     Dosage: BODY SURFACE
     Route: 033
  2. CISPLATIN [Suspect]
     Indication: METASTASES TO PERITONEUM
     Dosage: BODY SURFACE
     Route: 033

REACTIONS (3)
  - Hepatotoxicity [Unknown]
  - Off label use [Unknown]
  - Incorrect route of drug administration [Unknown]
